FAERS Safety Report 11891950 (Version 1)
Quarter: 2016Q1

REPORT INFORMATION
  Report Type: Spontaneous
  Country: US (occurrence: US)
  Receive Date: 20160106
  Receipt Date: 20160106
  Transmission Date: 20160526
  Serious: Yes (Other)
  Sender: FDA-Public Use
  Company Number: US-TEVA-622433USA

PATIENT
  Sex: Female
  Weight: 65.83 kg

DRUGS (1)
  1. AMPHETAMINE W/DEXTROAMPHETAMINE [Suspect]
     Active Substance: AMPHETAMINE SULFATE\DEXTROAMPHETAMINE
     Indication: FATIGUE
     Route: 065
     Dates: start: 20151106, end: 20151229

REACTIONS (14)
  - Ear discomfort [Unknown]
  - Flushing [Unknown]
  - Tinnitus [Unknown]
  - Weight decreased [Unknown]
  - Decreased appetite [Unknown]
  - Palpitations [Unknown]
  - Hyperthyroidism [Unknown]
  - Oropharyngeal blistering [Unknown]
  - Oropharyngeal pain [Unknown]
  - Sinusitis [Recovered/Resolved]
  - Product use issue [Unknown]
  - Pharyngeal oedema [Unknown]
  - Intentional product misuse [Unknown]
  - Nasopharyngitis [Unknown]
